FAERS Safety Report 8738170 (Version 2)
Quarter: 2012Q4

REPORT INFORMATION
  Report Type: 
  Country: GB (occurrence: GB)
  Receive Date: 20120823
  Receipt Date: 20120828
  Transmission Date: 20130627
  Serious: Yes (Other)
  Sender: FDA-Public Use
  Company Number: GB-009507513-1208GBR006353

PATIENT

DRUGS (5)
  1. MIRTAZAPINE [Suspect]
     Indication: ANXIETY
     Dosage: 30 mg, UNK
     Route: 048
     Dates: end: 20120703
  2. MIRTAZAPINE [Suspect]
     Indication: DEPRESSION
  3. DOUBLEBASE [Concomitant]
     Dosage: 1 DF, qid
  4. MINERAL OIL [Concomitant]
     Dosage: 20 ml, UNK
  5. QUININE SULFATE [Concomitant]
     Indication: MUSCLE SPASMS
     Dosage: 30 mg, UNK
     Route: 048

REACTIONS (2)
  - Faeces discoloured [Recovered/Resolved]
  - Chromaturia [Recovered/Resolved]
